FAERS Safety Report 9022616 (Version 1)
Quarter: 2013Q1

REPORT INFORMATION
  Report Type: Spontaneous
  Country: US (occurrence: US)
  Receive Date: 20130118
  Receipt Date: 20130118
  Transmission Date: 20140127
  Serious: No
  Sender: FDA-Public Use
  Company Number: US-GLAXOSMITHKLINE-A1002578A

PATIENT
  Sex: Female

DRUGS (2)
  1. PROMACTA [Suspect]
     Indication: APLASTIC ANAEMIA
     Dosage: 100MG PER DAY
     Route: 048
     Dates: start: 20120727, end: 20121101
  2. UNKNOWN [Concomitant]

REACTIONS (3)
  - No therapeutic response [Unknown]
  - Platelet count decreased [Unknown]
  - Off label use [Unknown]
